FAERS Safety Report 8214236-5 (Version None)
Quarter: 2012Q1

REPORT INFORMATION
  Report Type: 
  Country: None (occurrence: None)
  Receive Date: 20120316
  Receipt Date: 20120306
  Transmission Date: 20120608
  Serious: Yes (Hospitalization)
  Sender: FDA-Public Use
  Company Number: US-BAYER-2011-043368

PATIENT
  Age: 49 Year
  Sex: Female
  Weight: 61 kg

DRUGS (24)
  1. AMLODIPINE BESYLATE AND BENAZEPRIL HCL [Concomitant]
     Dosage: UNK
     Route: 048
     Dates: start: 20000101
  2. PRISTIQ [Concomitant]
     Indication: DEPRESSION
     Dosage: 50 MG, UNK
     Dates: start: 20080910, end: 20090923
  3. SULFAMETHOXAZOLE + TRIMETHOPRIM [Concomitant]
     Dosage: UNK
     Route: 048
     Dates: start: 20090615
  4. YASMIN [Suspect]
     Indication: CONTRACEPTION
     Dosage: UNK
     Dates: start: 20080501, end: 20080601
  5. CALCIUM [Concomitant]
     Dosage: UNK
     Route: 048
  6. TOPAMAX [Concomitant]
     Indication: HEADACHE
     Dosage: 100 MG, BID
     Route: 048
     Dates: start: 20060912, end: 20100612
  7. SINGULAIR [Concomitant]
     Indication: MULTIPLE ALLERGIES
     Dosage: 10 MG, QD
     Route: 048
     Dates: start: 20081025, end: 20100612
  8. ROBAXIN [Concomitant]
     Indication: MUSCLE SPASMS
     Dosage: 500 MG, TID
     Route: 048
     Dates: start: 20090828, end: 20100425
  9. YASMIN [Suspect]
  10. ASPIRIN [Concomitant]
     Dosage: UNK
     Route: 048
     Dates: start: 20080101
  11. VITAMIN B COMPLEX CAP [Concomitant]
     Dosage: 1 DF, QD
     Route: 048
     Dates: start: 20080701, end: 20090923
  12. MULTI-VITAMINS [Concomitant]
     Dosage: 1 DF, QD
     Dates: start: 20080701, end: 20090923
  13. YAZ [Suspect]
     Indication: CONTRACEPTION
     Dosage: UNK
     Dates: start: 20080201, end: 20090801
  14. IBUPROFEN [Concomitant]
     Dosage: UNK
     Route: 048
     Dates: start: 20080101
  15. YASMIN [Suspect]
     Indication: PREMENSTRUAL SYNDROME
  16. BENAZEPRIL HYDROCHLORIDE [Concomitant]
     Indication: HYPERTENSION
     Dosage: UNK
     Route: 048
     Dates: start: 20000101
  17. NAPROXEN SODIUM W/PSEUDOEPHEDRINE HCL [Concomitant]
     Dosage: 500 MG, QD
     Route: 048
     Dates: start: 20080901
  18. FLUTICASONE PROPIONATE [Concomitant]
     Dosage: UNK
     Route: 045
     Dates: start: 20090615
  19. YAZ [Suspect]
     Indication: PREMENSTRUAL SYNDROME
  20. HYDROCHLOROTHIAZIDE [Concomitant]
     Indication: HYPERTENSION
     Dosage: UNK
     Route: 048
     Dates: start: 20000101
  21. LOTREL [Concomitant]
     Dosage: UNK UNK, QD
     Dates: start: 20070715, end: 20100612
  22. YAZ [Suspect]
  23. GUANFACINE HYDROCHLORIDE [Concomitant]
     Indication: HYPERTENSION
     Dosage: UNK
     Route: 048
     Dates: start: 20080101, end: 20090101
  24. WELLBUTRIN [Concomitant]
     Dosage: 150 MG, QD
     Dates: start: 20080701, end: 20090923

REACTIONS (5)
  - ANHEDONIA [None]
  - DEEP VEIN THROMBOSIS [None]
  - ANXIETY [None]
  - EMOTIONAL DISTRESS [None]
  - PAIN [None]
